FAERS Safety Report 5558109-5 (Version None)
Quarter: 2007Q4

REPORT INFORMATION
  Report Type: 
  Country: None (occurrence: None)
  Receive Date: 20071214
  Receipt Date: 20071206
  Transmission Date: 20080405
  Serious: Yes (Hospitalization)
  Sender: FDA-Public Use
  Company Number: GBWYE874619JUN07

PATIENT
  Sex: Male

DRUGS (3)
  1. EFFEXOR XR [Suspect]
     Route: 048
     Dates: start: 20070218
  2. QUINTOPAN [Concomitant]
     Dosage: 25MG, FREQUENCY UNKNOWN
  3. MIRTAZAPINE [Concomitant]
     Dosage: 10MG, FREQUENCY UNKNOWN

REACTIONS (3)
  - HERPES ZOSTER [None]
  - PAIN [None]
  - WEIGHT INCREASED [None]
